FAERS Safety Report 15989405 (Version 3)
Quarter: 2019Q1

REPORT INFORMATION
  Report Type: Spontaneous
  Country: US (occurrence: US)
  Receive Date: 20190221
  Receipt Date: 20190320
  Transmission Date: 20190418
  Serious: No
  Sender: FDA-Public Use
  Company Number: US-HORIZON-KRY-0076-2019

PATIENT
  Age: 59 Year

DRUGS (2)
  1. KRYSTEXXA [Suspect]
     Active Substance: PEGLOTICASE
     Indication: PRODUCT USED FOR UNKNOWN INDICATION
     Dates: start: 20190121
  2. MTX [Concomitant]
     Active Substance: METHOTREXATE SODIUM

REACTIONS (1)
  - Drug ineffective [Unknown]
